FAERS Safety Report 14855687 (Version 1)
Quarter: 2018Q2

REPORT INFORMATION
  Report Type: Spontaneous
  Country: US (occurrence: US)
  Receive Date: 20180507
  Receipt Date: 20180507
  Transmission Date: 20180711
  Serious: No
  Sender: FDA-Public Use
  Company Number: US-ROCHE-1921827

PATIENT
  Sex: Female

DRUGS (2)
  1. ESBRIET [Suspect]
     Active Substance: PIRFENIDONE
     Indication: ILL-DEFINED DISORDER
     Route: 048
     Dates: start: 20170317
  2. ESBRIET [Suspect]
     Active Substance: PIRFENIDONE
     Route: 048
     Dates: start: 20170323, end: 20170420

REACTIONS (7)
  - Abdominal discomfort [Unknown]
  - Fatigue [Unknown]
  - Somnolence [Unknown]
  - Chills [Unknown]
  - Decreased appetite [Unknown]
  - Tremor [Unknown]
  - Pain in extremity [Unknown]
